FAERS Safety Report 5470009-8 (Version None)
Quarter: 2007Q3

REPORT INFORMATION
  Report Type: 
  Country: None (occurrence: None)
  Receive Date: 20070927
  Receipt Date: 20070917
  Transmission Date: 20080115
  Serious: Yes (Other)
  Sender: FDA-Public Use
  Company Number: US-PFIZER INC-2007078213

PATIENT
  Sex: Female
  Weight: 28.181 kg

DRUGS (8)
  1. CHANTIX [Suspect]
     Indication: SMOKING CESSATION THERAPY
     Dates: start: 20070101, end: 20070101
  2. KLONOPIN [Interacting]
     Indication: ANXIETY
  3. SEROQUEL [Interacting]
     Indication: INSOMNIA
  4. TRAZODONE HCL [Interacting]
     Indication: INSOMNIA
  5. CYMBALTA [Concomitant]
  6. PROVIGIL [Concomitant]
  7. NADOLOL [Concomitant]
  8. FLEXERIL [Concomitant]

REACTIONS (4)
  - DRUG INTERACTION [None]
  - EYE DISORDER [None]
  - PANIC ATTACK [None]
  - TREMOR [None]
